FAERS Safety Report 21381931 (Version 2)
Quarter: 2022Q4

REPORT INFORMATION
  Report Type: Report from Study
  Country: US (occurrence: US)
  Receive Date: 20220927
  Receipt Date: 20221230
  Transmission Date: 20230113
  Serious: Yes (Hospitalization, Other)
  Sender: FDA-Public Use
  Company Number: US-TAKEDA-US201718252

PATIENT
  Age: 32 Year
  Sex: Female
  Weight: 93 kg

DRUGS (91)
  1. PARATHYROID HORMONE [Suspect]
     Active Substance: PARATHYROID HORMONE
     Indication: Hypoparathyroidism
     Dosage: 50 MICROGRAM, QD
     Route: 065
     Dates: start: 20150909, end: 20160106
  2. PARATHYROID HORMONE [Suspect]
     Active Substance: PARATHYROID HORMONE
     Indication: Hypoparathyroidism
     Dosage: 50 MICROGRAM, QD
     Route: 065
     Dates: start: 20150909, end: 20160106
  3. PARATHYROID HORMONE [Suspect]
     Active Substance: PARATHYROID HORMONE
     Indication: Hypoparathyroidism
     Dosage: 50 MICROGRAM, QD
     Route: 065
     Dates: start: 20150909, end: 20160106
  4. PARATHYROID HORMONE [Suspect]
     Active Substance: PARATHYROID HORMONE
     Dosage: 75 MICROGRAM, QD
     Route: 065
     Dates: start: 20160206, end: 20161003
  5. PARATHYROID HORMONE [Suspect]
     Active Substance: PARATHYROID HORMONE
     Dosage: 75 MICROGRAM, QD
     Route: 065
     Dates: start: 20160206, end: 20161003
  6. PARATHYROID HORMONE [Suspect]
     Active Substance: PARATHYROID HORMONE
     Dosage: 75 MICROGRAM, QD
     Route: 065
     Dates: start: 20160206, end: 20161003
  7. PARATHYROID HORMONE [Suspect]
     Active Substance: PARATHYROID HORMONE
     Dosage: 100 MICROGRAM, QD
     Route: 065
     Dates: start: 20161003, end: 20190405
  8. PARATHYROID HORMONE [Suspect]
     Active Substance: PARATHYROID HORMONE
     Dosage: 100 MICROGRAM, QD
     Route: 065
     Dates: start: 20161003, end: 20190405
  9. PARATHYROID HORMONE [Suspect]
     Active Substance: PARATHYROID HORMONE
     Dosage: 100 MICROGRAM, QD
     Route: 065
     Dates: start: 20161003, end: 20190405
  10. CALCITRIOL [Concomitant]
     Active Substance: CALCITRIOL
     Indication: Product used for unknown indication
  11. ZOLOFT [Concomitant]
     Active Substance: SERTRALINE HYDROCHLORIDE
     Indication: Product used for unknown indication
  12. DIAZEPAM [Concomitant]
     Active Substance: DIAZEPAM
     Indication: Anxiety
     Dosage: UNK
     Route: 058
     Dates: start: 20140114, end: 20170530
  13. DIAZEPAM [Concomitant]
     Active Substance: DIAZEPAM
     Indication: Headache
     Dosage: UNK
     Route: 042
     Dates: start: 20160421, end: 20160421
  14. FORTEO [Concomitant]
     Active Substance: TERIPARATIDE
     Indication: Osteoporosis
  15. IBUPROFEN [Concomitant]
     Active Substance: IBUPROFEN
     Indication: Pain
     Dosage: UNK
     Route: 048
     Dates: start: 20140717, end: 20170510
  16. ZOFRAN [Concomitant]
     Active Substance: ONDANSETRON HYDROCHLORIDE
     Indication: Nausea
     Dosage: UNK
     Route: 065
     Dates: start: 20140409
  17. ZOFRAN [Concomitant]
     Active Substance: ONDANSETRON HYDROCHLORIDE
     Indication: Chest pain
     Dosage: UNK
     Route: 042
     Dates: start: 20141012, end: 20141012
  18. ZOFRAN [Concomitant]
     Active Substance: ONDANSETRON HYDROCHLORIDE
     Indication: Procedural pain
     Dosage: UNK
     Route: 048
     Dates: start: 20141117, end: 20141117
  19. ZOFRAN [Concomitant]
     Active Substance: ONDANSETRON HYDROCHLORIDE
     Indication: Hypocalcaemia
     Dosage: UNK
     Route: 042
     Dates: start: 20150108, end: 20150108
  20. ZOFRAN [Concomitant]
     Active Substance: ONDANSETRON HYDROCHLORIDE
     Dosage: UNK
     Route: 065
     Dates: start: 20150601, end: 20150601
  21. ZOFRAN [Concomitant]
     Active Substance: ONDANSETRON HYDROCHLORIDE
     Dosage: UNK
     Route: 042
     Dates: start: 20151001, end: 20151001
  22. ZOFRAN [Concomitant]
     Active Substance: ONDANSETRON HYDROCHLORIDE
     Dosage: UNK
     Route: 042
     Dates: start: 20151025, end: 20151025
  23. ZOFRAN [Concomitant]
     Active Substance: ONDANSETRON HYDROCHLORIDE
     Dosage: UNK
     Route: 042
     Dates: start: 20151125, end: 20151125
  24. POTASSIUM [Concomitant]
     Active Substance: POTASSIUM
     Indication: Hypokalaemia
     Dosage: UNK
     Route: 065
     Dates: start: 20140703
  25. SYNTHROID [Concomitant]
     Active Substance: LEVOTHYROXINE SODIUM
     Indication: Hypothyroidism
     Dosage: UNK
     Route: 065
     Dates: start: 20120612
  26. ESTRADIOL [Concomitant]
     Active Substance: ESTRADIOL
     Indication: Hypogonadism
     Dosage: UNK
     Route: 065
     Dates: start: 20150109
  27. ESTRADIOL [Concomitant]
     Active Substance: ESTRADIOL
     Dosage: UNK
     Route: 061
     Dates: start: 20161019, end: 20161027
  28. ACETAMINOPHEN\OXYCODONE HYDROCHLORIDE\OXYCODONE TEREPHTHALATE [Concomitant]
     Active Substance: ACETAMINOPHEN\OXYCODONE HYDROCHLORIDE\OXYCODONE TEREPHTHALATE
     Indication: Pain
     Dosage: UNK
     Route: 048
     Dates: start: 20131120, end: 20170608
  29. ACETAMINOPHEN\OXYCODONE HYDROCHLORIDE\OXYCODONE TEREPHTHALATE [Concomitant]
     Active Substance: ACETAMINOPHEN\OXYCODONE HYDROCHLORIDE\OXYCODONE TEREPHTHALATE
     Indication: Procedural pain
     Dosage: UNK
     Route: 048
     Dates: start: 20140808, end: 20140808
  30. ACETAMINOPHEN\OXYCODONE HYDROCHLORIDE\OXYCODONE TEREPHTHALATE [Concomitant]
     Active Substance: ACETAMINOPHEN\OXYCODONE HYDROCHLORIDE\OXYCODONE TEREPHTHALATE
     Indication: Seizure
     Dosage: UNK
     Route: 048
     Dates: start: 20141117, end: 20141117
  31. ACETAMINOPHEN\OXYCODONE HYDROCHLORIDE\OXYCODONE TEREPHTHALATE [Concomitant]
     Active Substance: ACETAMINOPHEN\OXYCODONE HYDROCHLORIDE\OXYCODONE TEREPHTHALATE
     Dosage: UNK
     Route: 048
     Dates: start: 20150410, end: 20150410
  32. ACETAMINOPHEN\OXYCODONE HYDROCHLORIDE\OXYCODONE TEREPHTHALATE [Concomitant]
     Active Substance: ACETAMINOPHEN\OXYCODONE HYDROCHLORIDE\OXYCODONE TEREPHTHALATE
     Dosage: UNK
     Route: 065
     Dates: start: 20150511, end: 20150511
  33. PROMETHAZINE HYDROCHLORIDE [Concomitant]
     Active Substance: PROMETHAZINE HYDROCHLORIDE
     Indication: Nausea
     Dosage: UNK
     Route: 048
     Dates: start: 20140410
  34. MORPHINE [Concomitant]
     Active Substance: MORPHINE
     Indication: Chest pain
     Dosage: UNK
     Route: 042
     Dates: start: 20141012, end: 20141012
  35. MORPHINE [Concomitant]
     Active Substance: MORPHINE
     Indication: Procedural pain
     Dosage: UNK
     Dates: start: 20141117, end: 20141117
  36. MORPHINE [Concomitant]
     Active Substance: MORPHINE
     Indication: Hypocalcaemia
     Dosage: UNK
     Route: 065
     Dates: start: 20150101, end: 20150101
  37. MORPHINE [Concomitant]
     Active Substance: MORPHINE
     Indication: Pain
     Dosage: UNK
     Dates: start: 20150108, end: 20150108
  38. MORPHINE [Concomitant]
     Active Substance: MORPHINE
     Indication: Idiopathic intracranial hypertension
     Dosage: UNK
     Dates: start: 20150511, end: 20150511
  39. MORPHINE [Concomitant]
     Active Substance: MORPHINE
     Dosage: UNK
     Route: 065
     Dates: start: 20151025, end: 20151025
  40. MORPHINE [Concomitant]
     Active Substance: MORPHINE
     Dosage: UNK
     Route: 065
     Dates: start: 20151001, end: 20151001
  41. MORPHINE [Concomitant]
     Active Substance: MORPHINE
     Dosage: UNK
     Dates: start: 20151025, end: 20151025
  42. MORPHINE [Concomitant]
     Active Substance: MORPHINE
     Dosage: UNK
     Route: 058
     Dates: start: 20160630, end: 20160630
  43. MORPHINE [Concomitant]
     Active Substance: MORPHINE
     Dosage: UNK
     Route: 042
     Dates: start: 20161017, end: 20161017
  44. ASPIRIN [Concomitant]
     Active Substance: ASPIRIN
     Indication: Chest pain
     Dosage: UNK
     Route: 048
     Dates: start: 20141012, end: 20141012
  45. DILAUDID [Concomitant]
     Active Substance: HYDROMORPHONE HYDROCHLORIDE
     Indication: Procedural pain
     Dosage: UNK
     Route: 042
     Dates: start: 20141117, end: 20141117
  46. DILAUDID [Concomitant]
     Active Substance: HYDROMORPHONE HYDROCHLORIDE
     Indication: Hypocalcaemia
     Dosage: UNK
     Route: 042
     Dates: start: 20141125, end: 20141125
  47. BENADRYL [Concomitant]
     Active Substance: DIPHENHYDRAMINE HYDROCHLORIDE
     Indication: Hypersensitivity
     Dosage: UNK
     Route: 042
     Dates: start: 20150101, end: 20150101
  48. BENADRYL [Concomitant]
     Active Substance: DIPHENHYDRAMINE HYDROCHLORIDE
     Indication: Headache
     Dosage: UNK
     Route: 042
     Dates: start: 20150108, end: 20150108
  49. BENADRYL [Concomitant]
     Active Substance: DIPHENHYDRAMINE HYDROCHLORIDE
     Dosage: UNK
     Route: 042
     Dates: start: 20150511, end: 20150511
  50. BENADRYL [Concomitant]
     Active Substance: DIPHENHYDRAMINE HYDROCHLORIDE
     Dosage: UNK
     Route: 042
     Dates: start: 20150601, end: 20150601
  51. BENADRYL [Concomitant]
     Active Substance: DIPHENHYDRAMINE HYDROCHLORIDE
     Dosage: UNK
     Route: 042
     Dates: start: 20160906, end: 20160906
  52. TORADOL [Concomitant]
     Active Substance: KETOROLAC TROMETHAMINE
     Indication: Pain
     Dosage: UNK
     Route: 065
     Dates: start: 20150108, end: 20150108
  53. TORADOL [Concomitant]
     Active Substance: KETOROLAC TROMETHAMINE
     Indication: Seizure
     Dosage: UNK
     Route: 042
     Dates: start: 20150410, end: 20150410
  54. CIPROFLOXACIN [Concomitant]
     Active Substance: CIPROFLOXACIN
     Indication: Urinary tract infection
     Dosage: UNK
     Route: 048
     Dates: start: 20150410, end: 20150410
  55. SOLU-MEDROL [Concomitant]
     Active Substance: METHYLPREDNISOLONE SODIUM SUCCINATE
     Indication: Eczema
     Dosage: UNK
     Dates: start: 20150511, end: 20150511
  56. MYLANTA [Concomitant]
     Active Substance: ALUMINUM HYDROXIDE\DIMETHICONE\MAGNESIUM HYDROXIDE
     Dosage: UNK
     Route: 065
     Dates: start: 20150511, end: 20150511
  57. LIDOCAINE [Concomitant]
     Active Substance: LIDOCAINE
     Dosage: UNK
     Route: 065
     Dates: start: 20150511, end: 20150511
  58. PEPCID [Concomitant]
     Active Substance: FAMOTIDINE
     Indication: Pain
     Dosage: UNK
     Dates: start: 20150511, end: 20150511
  59. PHENERGAN [Concomitant]
     Active Substance: PROMETHAZINE HYDROCHLORIDE
     Indication: Nausea
     Dosage: UNK
     Route: 065
     Dates: start: 20150601, end: 20150601
  60. ADVIL [Concomitant]
     Active Substance: IBUPROFEN
     Indication: Chest pain
     Dosage: UNK
     Route: 048
     Dates: start: 20151001, end: 20151001
  61. ALBUTEROL [Concomitant]
     Active Substance: ALBUTEROL
     Indication: Dyspnoea
     Dosage: UNK
     Route: 055
     Dates: start: 20160106
  62. ROCEPHIN [Concomitant]
     Active Substance: CEFTRIAXONE SODIUM
     Indication: Meningitis
     Dosage: UNK
     Route: 042
     Dates: start: 20160106, end: 20160108
  63. CALCIUM GLUCONATE [Concomitant]
     Active Substance: CALCIUM GLUCONATE
     Indication: Headache
     Dosage: UNK
     Dates: start: 20160301, end: 20160301
  64. KETOROLAC [Concomitant]
     Active Substance: KETOROLAC TROMETHAMINE
     Indication: Headache
     Dosage: UNK
     Route: 042
     Dates: start: 20160301, end: 20160301
  65. KETOROLAC [Concomitant]
     Active Substance: KETOROLAC TROMETHAMINE
     Indication: Idiopathic intracranial hypertension
     Dosage: UNK
     Route: 058
     Dates: start: 20160630, end: 20160630
  66. KETOROLAC [Concomitant]
     Active Substance: KETOROLAC TROMETHAMINE
     Indication: Empyema
     Dosage: UNK
     Route: 042
     Dates: start: 20160906, end: 20160906
  67. KETOROLAC [Concomitant]
     Active Substance: KETOROLAC TROMETHAMINE
     Dosage: UNK
     Route: 042
     Dates: start: 20161017, end: 20161019
  68. PROMETHAZINE [Concomitant]
     Active Substance: PROMETHAZINE HYDROCHLORIDE
     Indication: Headache
     Dosage: UNK
     Route: 042
     Dates: start: 20160301, end: 20160301
  69. OXYCODONE [Concomitant]
     Active Substance: OXYCODONE
     Indication: Idiopathic intracranial hypertension
     Dosage: UNK
     Route: 048
     Dates: start: 20160614, end: 201606
  70. OXYCODONE [Concomitant]
     Active Substance: OXYCODONE
     Dosage: UNK
     Route: 048
     Dates: start: 20160709, end: 201607
  71. SENNA [Concomitant]
     Active Substance: SENNA LEAF\SENNOSIDES\SENNOSIDES A AND B
     Indication: Idiopathic intracranial hypertension
     Dosage: UNK
     Route: 048
     Dates: start: 20160614, end: 201606
  72. SENNA [Concomitant]
     Active Substance: SENNA LEAF\SENNOSIDES\SENNOSIDES A AND B
     Indication: Constipation
  73. CYCLOBENZAPRINE [Concomitant]
     Active Substance: CYCLOBENZAPRINE
     Indication: Idiopathic intracranial hypertension
     Dosage: UNK
     Route: 048
     Dates: start: 20160709, end: 201607
  74. DOCUSATE SODIUM [Concomitant]
     Active Substance: DOCUSATE SODIUM
     Indication: Idiopathic intracranial hypertension
     Dosage: UNK
     Route: 048
     Dates: start: 20160709, end: 201607
  75. POLYETHYLENE GLYCOL [Concomitant]
     Active Substance: POLYETHYLENE GLYCOL
     Indication: Idiopathic intracranial hypertension
     Dosage: UNK
     Route: 048
     Dates: start: 20160709, end: 201607
  76. ONDANSETRON [Concomitant]
     Active Substance: ONDANSETRON
     Indication: Idiopathic intracranial hypertension
     Dosage: UNK
     Route: 058
     Dates: start: 20160630, end: 20160630
  77. TRAMADOL [Concomitant]
     Active Substance: TRAMADOL
     Indication: Idiopathic intracranial hypertension
     Dosage: UNK
     Route: 048
     Dates: start: 20160828, end: 201610
  78. KEFLEX [Concomitant]
     Active Substance: CEPHALEXIN
     Indication: Idiopathic intracranial hypertension
     Dosage: UNK
     Route: 048
     Dates: start: 20160819, end: 20160828
  79. KEFLEX [Concomitant]
     Active Substance: CEPHALEXIN
     Indication: Wound infection
     Dosage: UNK
     Route: 048
     Dates: start: 20170523, end: 20170530
  80. KEFLEX [Concomitant]
     Active Substance: CEPHALEXIN
     Indication: Wound dehiscence
  81. PIPERACILLIN AND TAZOBACTAM [Concomitant]
     Active Substance: PIPERACILLIN SODIUM\TAZOBACTAM SODIUM
     Indication: Empyema
     Dosage: UNK
     Route: 042
     Dates: start: 20161017, end: 20161017
  82. PIPERACILLIN AND TAZOBACTAM [Concomitant]
     Active Substance: PIPERACILLIN SODIUM\TAZOBACTAM SODIUM
     Dosage: UNK
     Route: 042
     Dates: start: 20161018, end: 20161020
  83. VANCOMYCIN [Concomitant]
     Active Substance: VANCOMYCIN
     Indication: Empyema
     Dosage: UNK
     Route: 042
     Dates: start: 20161017, end: 20161018
  84. IOPAMIDOL [Concomitant]
     Active Substance: IOPAMIDOL
     Indication: Empyema
     Dosage: UNK
     Route: 042
     Dates: start: 20161017, end: 20161017
  85. HEPARIN [Concomitant]
     Active Substance: HEPARIN SODIUM
     Indication: Empyema
     Dosage: UNK
     Route: 058
     Dates: start: 20161018, end: 20161020
  86. DAPTOMYCIN [Concomitant]
     Active Substance: DAPTOMYCIN
     Indication: Empyema
     Dosage: UNK
     Route: 042
     Dates: start: 20161019, end: 20161019
  87. CEFTRIAXONE SODIUM [Concomitant]
     Active Substance: CEFTRIAXONE SODIUM
     Dosage: UNK
     Route: 042
     Dates: start: 20161020, end: 20161027
  88. FLUCONAZOLE [Concomitant]
     Active Substance: FLUCONAZOLE
     Indication: Vaginal infection
     Dosage: UNK
     Route: 048
     Dates: start: 20161202, end: 20161208
  89. HYDROCORTISONE [Concomitant]
     Active Substance: HYDROCORTISONE
     Indication: Vaginal infection
     Dosage: UNK
     Route: 061
     Dates: start: 20161202, end: 20170210
  90. SENNA AND DOCUSATE SODIUM [Concomitant]
     Active Substance: DOCUSATE SODIUM\SENNOSIDES
     Indication: Empyema
     Dosage: UNK
     Route: 048
     Dates: start: 20161019, end: 20161025
  91. SENNA AND DOCUSATE SODIUM [Concomitant]
     Active Substance: DOCUSATE SODIUM\SENNOSIDES
     Dosage: UNK
     Route: 048
     Dates: start: 20170317, end: 20170318

REACTIONS (2)
  - Device related infection [Recovered/Resolved]
  - Wound dehiscence [Recovered/Resolved]

NARRATIVE: CASE EVENT DATE: 20170501
